FAERS Safety Report 6385535-7 (Version None)
Quarter: 2009Q4

REPORT INFORMATION
  Report Type: 
  Country: None (occurrence: None)
  Receive Date: 20091002
  Receipt Date: 20081119
  Transmission Date: 20100525
  Serious: No
  Sender: FDA-Public Use
  Company Number: US-ASTRAZENECA-2008UW18903

PATIENT
  Age: 76 Year
  Sex: Female
  Weight: 60.3 kg

DRUGS (6)
  1. ARIMIDEX [Suspect]
     Indication: BREAST CANCER FEMALE
     Route: 048
     Dates: start: 20070308
  2. FOSAMAX [Concomitant]
  3. DIURETIC [Concomitant]
  4. HYDROCHLOROTHIAZIDE [Concomitant]
     Indication: HYPERTENSION
     Route: 048
  5. MULTI-VITAMIN [Concomitant]
     Dosage: 1 PILL
     Route: 048
  6. CALCIUM [Concomitant]
     Indication: OSTEOPENIA
     Dosage: 1 PILL
     Route: 048

REACTIONS (6)
  - ARTHRALGIA [None]
  - BODY HEIGHT DECREASED [None]
  - RESORPTION BONE INCREASED [None]
  - SKIN DISORDER [None]
  - SKIN EXFOLIATION [None]
  - WEIGHT INCREASED [None]
